FAERS Safety Report 7208394-9 (Version None)
Quarter: 2010Q4

REPORT INFORMATION
  Report Type: 
  Country: None (occurrence: None)
  Receive Date: 20101222
  Receipt Date: 20101208
  Transmission Date: 20110411
  Serious: Yes (Hospitalization)
  Sender: FDA-Public Use
  Company Number: 023504

PATIENT
  Sex: Female
  Weight: 63.9572 kg

DRUGS (4)
  1. CIMZIA [Suspect]
     Indication: CROHN'S DISEASE
     Dosage: (400 MG 1X/2 WEEKS SUBCUTANEOUS), (200 MG 1X/2 WEEKS SUBCUTANEOUS)
     Route: 058
     Dates: start: 20100312
  2. CIMZIA [Suspect]
     Indication: CROHN'S DISEASE
     Dosage: (400 MG 1X/2 WEEKS SUBCUTANEOUS), (200 MG 1X/2 WEEKS SUBCUTANEOUS)
     Route: 058
     Dates: start: 20100501
  3. CORTIFOAM [Concomitant]
  4. . [Concomitant]

REACTIONS (9)
  - BLOOD GLUCOSE INCREASED [None]
  - BLOOD POTASSIUM DECREASED [None]
  - BLOOD UREA INCREASED [None]
  - DYSPHAGIA [None]
  - HYPOPHAGIA [None]
  - MYOCARDIAL INFARCTION [None]
  - ORAL CANDIDIASIS [None]
  - PNEUMONIA [None]
  - VULVOVAGINAL CANDIDIASIS [None]
